FAERS Safety Report 10879926 (Version 1)
Quarter: 2015Q1

REPORT INFORMATION
  Report Type: Spontaneous
  Country: US (occurrence: US)
  Receive Date: 20150302
  Receipt Date: 20150302
  Transmission Date: 20150721
  Serious: No
  Sender: FDA-Public Use
  Company Number: US-PFIZER INC-2015069359

PATIENT
  Age: 80 Year
  Sex: Female
  Weight: 66 kg

DRUGS (17)
  1. METOPROLOL [Concomitant]
     Active Substance: METOPROLOL
     Dosage: 25 MG, 2X/DAY
  2. LYRICA [Suspect]
     Active Substance: PREGABALIN
     Dosage: 50 MG, 2X/DAY (50MG IN MORNING AND 50MG IN NIGHT)
  3. POLYETHYLENE GLYCOL [Concomitant]
     Active Substance: POLYETHYLENE GLYCOLS
     Dosage: UNK
  4. LYRICA [Suspect]
     Active Substance: PREGABALIN
     Indication: FIBROMYALGIA
     Dosage: 250 MG, UNK
  5. AMIODARONE [Concomitant]
     Active Substance: AMIODARONE
     Dosage: 200 MG, DAILY
  6. ELIQUIS [Concomitant]
     Active Substance: APIXABAN
     Dosage: 2.5 MG, 2X/DAY
  7. FLUTICASONE PROPIONATE. [Concomitant]
     Active Substance: FLUTICASONE PROPIONATE
     Dosage: UNK
  8. SPIRIVA INHALER [Concomitant]
     Dosage: UNK
  9. LYRICA [Suspect]
     Active Substance: PREGABALIN
     Dosage: 75 MG, 2X/DAY (75MG IN THE MORNING AND 75 MG IN THE BED TIME (IN NIGHT))
  10. LYRICA [Suspect]
     Active Substance: PREGABALIN
     Dosage: 50 MG, 1X/DAY (AT BED TIME)
     Dates: end: 20150216
  11. POTASSIUM CHLORIDE. [Concomitant]
     Active Substance: POTASSIUM CHLORIDE
     Dosage: 20 ?G, 2X/DAY
  12. TYLENOL [Concomitant]
     Active Substance: ACETAMINOPHEN
     Dosage: UNK
  13. LASIX [Concomitant]
     Active Substance: FUROSEMIDE
     Dosage: 20 MG, 2X/DAY
  14. ALBUTEROL NEBULIZER [Concomitant]
     Active Substance: ALBUTEROL
     Dosage: UNK
  15. LEVOTHYROXINE [Concomitant]
     Active Substance: LEVOTHYROXINE
     Dosage: 100 ?G, 1X/DAY
  16. ALBUTEROL. [Concomitant]
     Active Substance: ALBUTEROL
     Dosage: UNK
  17. VITAMIN B COMPLEX [Concomitant]
     Active Substance: CYANOCOBALAMIN\DEXPANTHENOL\NIACINAMIDE\PYRIDOXINE HYDROCHLORIDE\RIBOFLAVIN 5^-PHOSPHATE SODIUM\THIAMINE HYDROCHLORIDE\VITAMIN B COMPLEX
     Dosage: UNK

REACTIONS (2)
  - Sleep disorder [Unknown]
  - Insomnia [Unknown]
